FAERS Safety Report 8812624 (Version 3)
Quarter: 2013Q1

REPORT INFORMATION
  Report Type: Spontaneous
  Country: US (occurrence: US)
  Receive Date: 20120927
  Receipt Date: 20130213
  Transmission Date: 20140127
  Serious: Yes (Other)
  Sender: FDA-Public Use
  Company Number: PHEH2012US018542

PATIENT
  Sex: Female

DRUGS (3)
  1. GILENYA [Suspect]
     Indication: MULTIPLE SCLEROSIS
     Dosage: 0.5 MG, QD
     Route: 048
     Dates: start: 20120406
  2. GILENYA [Suspect]
     Dosage: 0.5 MG, QD
     Route: 048
     Dates: end: 201211
  3. EXCEDRIN [Concomitant]
     Indication: MIGRAINE

REACTIONS (6)
  - Suicidal ideation [Recovered/Resolved]
  - Cerebral haemorrhage [Recovering/Resolving]
  - Vascular rupture [Recovering/Resolving]
  - Headache [Not Recovered/Not Resolved]
  - Cerebrovascular accident [Recovering/Resolving]
  - Glossodynia [Recovered/Resolved]
